FAERS Safety Report 14914811 (Version 2)
Quarter: 2018Q2

REPORT INFORMATION
  Report Type: Spontaneous
  Country: DK (occurrence: DK)
  Receive Date: 20180518
  Receipt Date: 20180614
  Transmission Date: 20180711
  Serious: Yes (Death, Hospitalization)
  Sender: FDA-Public Use
  Company Number: DK-JNJFOC-20180521564

PATIENT
  Age: 70 Year
  Sex: Female

DRUGS (1)
  1. XARELTO [Suspect]
     Active Substance: RIVAROXABAN
     Indication: THROMBOSIS PROPHYLAXIS
     Route: 048

REACTIONS (14)
  - Depressed level of consciousness [Unknown]
  - Dyspnoea [Unknown]
  - Endotracheal intubation [Recovered/Resolved]
  - Hypertension [Recovered/Resolved]
  - Speech disorder [Unknown]
  - Dizziness [Unknown]
  - Brain death [Fatal]
  - Cerebral haemorrhage [Fatal]
  - Loss of consciousness [Fatal]
  - Headache [Unknown]
  - Hemiplegia [Unknown]
  - Lung infiltration [Unknown]
  - Hyperhidrosis [Unknown]
  - Malaise [Unknown]

NARRATIVE: CASE EVENT DATE: 201504
